FAERS Safety Report 9167336 (Version 1)
Quarter: 2013Q1

REPORT INFORMATION
  Report Type: Spontaneous
  Country: CH (occurrence: CH)
  Receive Date: 20130318
  Receipt Date: 20130318
  Transmission Date: 20140127
  Serious: Yes (Hospitalization, Other)
  Sender: FDA-Public Use
  Company Number: CH-009507513-1303CHE007207

PATIENT
  Age: 79 Year
  Sex: Male

DRUGS (4)
  1. REMERON [Suspect]
     Dosage: 6 DF, ONCE,TOTAL DAILY DOSE 180MG
     Route: 048
     Dates: start: 20130112, end: 20130112
  2. MEFENAMIC ACID [Suspect]
     Dosage: 50 DF, ONCE,TOTAL DAILY DOSE AT 25G
     Route: 048
     Dates: start: 20130112, end: 20130112
  3. CITALOPRAM [Suspect]
     Dosage: 100 DF, ONCE,TOTAL DAILY DOSE 2GRAM
     Route: 048
     Dates: start: 20130112, end: 20130112
  4. METHADONE HYDROCHLORIDE [Suspect]
     Dosage: UNK
     Route: 048
     Dates: start: 20130112, end: 20130112

REACTIONS (5)
  - Suicide attempt [Recovered/Resolved]
  - Epilepsy [Recovered/Resolved]
  - Metabolic acidosis [Recovered/Resolved]
  - Disorientation [Recovered/Resolved]
  - Somnolence [Recovered/Resolved]
